FAERS Safety Report 5525725-6 (Version None)
Quarter: 2007Q4

REPORT INFORMATION
  Report Type: 
  Country: None (occurrence: None)
  Receive Date: 20071120
  Receipt Date: 20071107
  Transmission Date: 20080405
  Serious: Yes (Other)
  Sender: FDA-Public Use
  Company Number: 164013USA

PATIENT
  Age: 45 Year
  Sex: Male

DRUGS (11)
  1. PHENYLEPHRINE HYDROCHLORIDE INJECTION, USP 1% 1 ML SDV + 5 ML SDV (PHE [Suspect]
  2. LEVOFLOXACIN [Concomitant]
  3. QUINUPRISTIN/DALFOPRISTIN [Concomitant]
  4. HYDROCORTISONE SUCCINATE [Concomitant]
  5. PROPOFOL [Concomitant]
  6. MIDAZOLAM HCL [Concomitant]
  7. ELECTROLYTE [Concomitant]
  8. FUROSEMIDE [Concomitant]
  9. HYDROXYZINE [Concomitant]
  10. METOPROLOL [Concomitant]
  11. HEPARIN [Concomitant]

REACTIONS (10)
  - BIOPSY SKIN ABNORMAL [None]
  - BLOOD BLISTER [None]
  - FIBRIN D DIMER INCREASED [None]
  - HYPOAESTHESIA [None]
  - PLATELET COUNT DECREASED [None]
  - PURPURA [None]
  - RASH [None]
  - SKIN DISCOLOURATION [None]
  - SKIN EXFOLIATION [None]
  - VASCULAR SKIN DISORDER [None]
